FAERS Safety Report 23860471 (Version 3)
Quarter: 2024Q3

REPORT INFORMATION
  Report Type: Spontaneous
  Country: FR (occurrence: FR)
  Receive Date: 20240516
  Receipt Date: 20240909
  Transmission Date: 20241016
  Serious: No
  Sender: ROCHE
  Company Number: None

PATIENT
  Age: 81 Year
  Sex: Female
  Weight: 53.0 kg

DRUGS (1)
  1. VABYSMO [Suspect]
     Active Substance: FARICIMAB\FARICIMAB-SVOA
     Indication: Neovascular age-related macular degeneration
     Dosage: 120 MG/ML, SOLUTION INJECTABLE
     Route: 065
     Dates: start: 20240208, end: 20240208

REACTIONS (2)
  - Uveitis [Recovered/Resolved]
  - Iridocyclitis [Recovered/Resolved]
